FAERS Safety Report 8507670 (Version 3)
Quarter: 2013Q1

REPORT INFORMATION
  Report Type: Spontaneous
  Country: US (occurrence: US)
  Receive Date: 20120412
  Receipt Date: 20130221
  Transmission Date: 20140127
  Serious: No
  Sender: FDA-Public Use
  Company Number: US-ASTRAZENECA-2011SE15763

PATIENT
  Age: 43 Year
  Sex: Female

DRUGS (1)
  1. NEXIUM [Suspect]
     Route: 048

REACTIONS (9)
  - Crohn^s disease [Unknown]
  - Nasopharyngitis [Unknown]
  - Fibromyalgia [Unknown]
  - Dyspepsia [Unknown]
  - Stress [Unknown]
  - Multiple allergies [Unknown]
  - Adverse event [Unknown]
  - Malaise [Unknown]
  - Drug dose omission [Unknown]
